FAERS Safety Report 22203440 (Version 2)
Quarter: 2023Q2

REPORT INFORMATION
  Report Type: Spontaneous
  Country: BR (occurrence: BR)
  Receive Date: 20230412
  Receipt Date: 20230613
  Transmission Date: 20230722
  Serious: Yes (Other)
  Sender: FDA-Public Use
  Company Number: BR-002147023-NVSC2023BR083349

PATIENT
  Age: 21 Year
  Sex: Male

DRUGS (3)
  1. ETANERCEPT [Suspect]
     Active Substance: ETANERCEPT
     Indication: Pustular psoriasis
     Dosage: 25 MG, QMO
     Route: 065
  2. ETANERCEPT [Suspect]
     Active Substance: ETANERCEPT
     Dosage: 50 MG (EXTRA)
     Route: 065
  3. ETANERCEPT [Suspect]
     Active Substance: ETANERCEPT
     Dosage: 50 MG (SECOND DOSE)
     Route: 065

REACTIONS (3)
  - Pustular psoriasis [Recovering/Resolving]
  - Condition aggravated [Recovering/Resolving]
  - Product use in unapproved indication [Unknown]
